FAERS Safety Report 12179079 (Version 1)
Quarter: 2016Q1

REPORT INFORMATION
  Report Type: Report from Study
  Country: BR (occurrence: BR)
  Receive Date: 20160315
  Receipt Date: 20160315
  Transmission Date: 20160526
  Serious: Yes (Death, Other)
  Sender: FDA-Public Use
  Company Number: PHHY2016BR034362

PATIENT
  Age: 82 Year
  Sex: Male
  Weight: 80 kg

DRUGS (1)
  1. EXELON [Suspect]
     Active Substance: RIVASTIGMINE TARTRATE
     Indication: DEMENTIA ALZHEIMER^S TYPE
     Dosage: UNK UNK, QD
     Route: 048

REACTIONS (5)
  - Lung perforation [Unknown]
  - Dementia Alzheimer^s type [Unknown]
  - Death [Fatal]
  - Rib fracture [Unknown]
  - Fall [Unknown]

NARRATIVE: CASE EVENT DATE: 20110219
